FAERS Safety Report 12456836 (Version 1)
Quarter: 2016Q2

REPORT INFORMATION
  Report Type: Not Available
  Country: GB (occurrence: GB)
  Receive Date: 20160610
  Receipt Date: 20160610
  Transmission Date: 20160815
  Serious: Yes (Hospitalization)
  Sender: FDA-Public Use
  Company Number: GB-MUNDIPHARMA DS AND PHARMACOVIGILANCE-GBR-2016-0036836

PATIENT
  Age: 93 Year
  Sex: Female

DRUGS (11)
  1. ATORVASTATIN [Concomitant]
     Active Substance: ATORVASTATIN
  2. MORPHINE SULFATE. [Suspect]
     Active Substance: MORPHINE SULFATE
     Indication: BACK PAIN
     Dosage: 2.5 MG, QID
     Route: 048
     Dates: start: 20160422, end: 20160426
  3. CLOPIDOGREL [Concomitant]
     Active Substance: CLOPIDOGREL BISULFATE
  4. PARACETAMOL [Concomitant]
     Active Substance: ACETAMINOPHEN
  5. AMLODIPINE [Concomitant]
     Active Substance: AMLODIPINE BESYLATE
  6. HUMAN INSULATARD [Concomitant]
     Active Substance: INSULIN HUMAN
  7. IRBESARTAN. [Concomitant]
     Active Substance: IRBESARTAN
  8. LANSOPRAZOLE. [Concomitant]
     Active Substance: LANSOPRAZOLE
  9. IBUPROFEN. [Concomitant]
     Active Substance: IBUPROFEN
  10. MIRTAZAPINE. [Concomitant]
     Active Substance: MIRTAZAPINE
  11. BISOPROLOL [Concomitant]
     Active Substance: BISOPROLOL

REACTIONS (4)
  - Toxicity to various agents [Recovered/Resolved]
  - Hypophagia [Recovered/Resolved]
  - Acute kidney injury [Recovered/Resolved]
  - Somnolence [Recovered/Resolved]

NARRATIVE: CASE EVENT DATE: 20160425
